FAERS Safety Report 19490980 (Version 2)
Quarter: 2023Q4

REPORT INFORMATION
  Report Type: Other
  Country: AT (occurrence: AT)
  Receive Date: 20210705
  Receipt Date: 20231212
  Transmission Date: 20240110
  Serious: Yes (Hospitalization)
  Sender: FDA-Public Use
  Company Number: AT-CELLTRION HEALTHCARE HUNGARY KFT-2019AT028769

PATIENT
  Age: 62 Year
  Sex: Female
  Weight: 80 kg

DRUGS (99)
  1. VINORELBINE [Suspect]
     Active Substance: VINORELBINE TARTRATE
     Indication: HER2 positive breast cancer
     Dosage: 50 MILLIGRAM (FREQUENCY: OTHER, RECEIVED DOSE ON 30/MAY/2017, MOST RECENT DOSE PRIOR TO THE EVENT: 2
     Route: 048
     Dates: start: 20170306, end: 20170530
  2. VINORELBINE [Suspect]
     Active Substance: VINORELBINE TARTRATE
     Route: 048
     Dates: start: 20170627, end: 20170718
  3. VINORELBINE [Suspect]
     Active Substance: VINORELBINE TARTRATE
     Dosage: MOST RECENT DOSE PRIOR TO THE EVENT: 27/JUN/2017
     Route: 048
     Dates: start: 20170306
  4. VINORELBINE [Suspect]
     Active Substance: VINORELBINE TARTRATE
     Route: 048
     Dates: start: 20170530
  5. VINORELBINE [Suspect]
     Active Substance: VINORELBINE TARTRATE
     Dosage: MOST RECENT DOSE PRIOR TO THE EVENT: 27/JUN/2019
     Route: 048
     Dates: start: 20170306
  6. VINORELBINE [Suspect]
     Active Substance: VINORELBINE TARTRATE
     Dosage: 50 MG (0.33 UNITS IN THE INTERVAL)
     Route: 048
     Dates: start: 20170306, end: 20170530
  7. ADO-TRASTUZUMAB EMTANSINE [Suspect]
     Active Substance: ADO-TRASTUZUMAB EMTANSINE
     Indication: HER2 positive breast cancer
     Route: 042
     Dates: start: 20180515, end: 20180813
  8. ADO-TRASTUZUMAB EMTANSINE [Suspect]
     Active Substance: ADO-TRASTUZUMAB EMTANSINE
     Dosage: MOST RECENT DOSE PRIOR TO THE EVENT: 15/MAY/2018
     Route: 042
     Dates: start: 20180424
  9. ADO-TRASTUZUMAB EMTANSINE [Suspect]
     Active Substance: ADO-TRASTUZUMAB EMTANSINE
     Route: 042
     Dates: start: 20171212, end: 20180424
  10. HERCEPTIN [Suspect]
     Active Substance: TRASTUZUMAB
     Indication: HER2 positive breast cancer
     Route: 041
     Dates: start: 20170306
  11. HERCEPTIN [Suspect]
     Active Substance: TRASTUZUMAB
     Dosage: MOST RECENT DOSE PRIOR TO THE EVENT: 07/MAY/2019, 27/MAY/2019, 04/SEP/
     Route: 042
     Dates: start: 20171121
  12. HERCEPTIN [Suspect]
     Active Substance: TRASTUZUMAB
     Dosage: ADDITIONAL INFO: TIME INTERVAL BETWEEN BEGINNING OF DRUG ADMINISTRATION AND START OF REACTION/EVENT:
     Route: 042
     Dates: start: 20170306, end: 20171121
  13. LAPATINIB [Suspect]
     Active Substance: LAPATINIB
     Indication: HER2 positive breast cancer
     Dosage: MOST RECENT DOSE PRIOR TO ADVERSE EVENT: 16/JAN/2019
     Route: 048
     Dates: start: 20181227
  14. LAPATINIB [Suspect]
     Active Substance: LAPATINIB
     Route: 048
     Dates: start: 20190116, end: 20190206
  15. HYALURONIDASE (HUMAN RECOMBINANT)\TRASTUZUMAB [Suspect]
     Active Substance: HYALURONIDASE (HUMAN RECOMBINANT)\TRASTUZUMAB
     Indication: HER2 positive breast cancer
     Route: 058
     Dates: start: 20190527, end: 20190617
  16. HYALURONIDASE (HUMAN RECOMBINANT)\TRASTUZUMAB [Suspect]
     Active Substance: HYALURONIDASE (HUMAN RECOMBINANT)\TRASTUZUMAB
     Route: 058
     Dates: start: 20200507, end: 20200507
  17. HYALURONIDASE (HUMAN RECOMBINANT)\TRASTUZUMAB [Suspect]
     Active Substance: HYALURONIDASE (HUMAN RECOMBINANT)\TRASTUZUMAB
     Route: 058
     Dates: start: 20180904, end: 20180904
  18. HYALURONIDASE (HUMAN RECOMBINANT)\TRASTUZUMAB [Suspect]
     Active Substance: HYALURONIDASE (HUMAN RECOMBINANT)\TRASTUZUMAB
     Route: 058
     Dates: start: 20181023, end: 20190226
  19. XELODA [Suspect]
     Active Substance: CAPECITABINE
     Indication: HER2 positive breast cancer
     Dosage: MOST RECENT DOSE PRIOR TO THE EVENT: 27/MAY/2019
     Route: 048
     Dates: start: 20180904
  20. XELODA [Suspect]
     Active Substance: CAPECITABINE
     Dosage: MOST RECENT DOSE PRIOR TO THE EVENT: 27/MAY/2019, 17/J
     Route: 048
     Dates: start: 20180910
  21. XELODA [Suspect]
     Active Substance: CAPECITABINE
     Dosage: 1000 MG, 0.5 MG PER DAY
     Route: 048
     Dates: start: 20190527, end: 201906
  22. XELODA [Suspect]
     Active Substance: CAPECITABINE
     Dosage: 1000 MG, 0.5 MG PER DAY
     Route: 048
     Dates: start: 20190617, end: 201909
  23. XELODA [Suspect]
     Active Substance: CAPECITABINE
     Route: 048
     Dates: start: 20180904, end: 20180910
  24. PERTUZUMAB [Suspect]
     Active Substance: PERTUZUMAB
     Indication: HER2 positive breast cancer
     Dosage: MOST RECENT DOSE ON 21/NOV/2017
     Route: 042
     Dates: start: 20170306
  25. NAVELBINE [Suspect]
     Active Substance: VINORELBINE TARTRATE
     Indication: HER2 positive breast cancer
     Route: 048
     Dates: start: 20170306
  26. NAVELBINE [Suspect]
     Active Substance: VINORELBINE TARTRATE
     Dosage: MOST RECENT DOSE PRIOR TO THE EVENT: 27/JUN/2017
     Route: 048
     Dates: start: 20170530
  27. LASIX [Concomitant]
     Active Substance: FUROSEMIDE
     Indication: Product used for unknown indication
     Dosage: UNK
     Dates: end: 20190907
  28. LASIX [Concomitant]
     Active Substance: FUROSEMIDE
     Dosage: ONGOING = CHECKED
     Route: 065
     Dates: end: 20190907
  29. LASIX [Concomitant]
     Active Substance: FUROSEMIDE
     Dosage: ONGOING = NOT CHECKED
     Dates: end: 20190907
  30. LASIX [Concomitant]
     Active Substance: FUROSEMIDE
     Dosage: ONGOING = CHECKED
     Route: 065
  31. LASIX [Concomitant]
     Active Substance: FUROSEMIDE
     Dosage: UNK
     Dates: end: 20190907
  32. EMEND [Concomitant]
     Active Substance: APREPITANT
     Indication: Product used for unknown indication
     Dosage: UNK
     Route: 065
     Dates: start: 20180127, end: 20180815
  33. ZOLPIDEM [Concomitant]
     Active Substance: ZOLPIDEM TARTRATE
     Indication: Product used for unknown indication
     Dosage: UNK
     Route: 065
     Dates: start: 20190215, end: 20190315
  34. MIRTAZAPINE [Concomitant]
     Active Substance: MIRTAZAPINE
     Indication: Product used for unknown indication
     Dosage: ONGOING =  CHECKED
     Route: 065
     Dates: start: 20190315, end: 20190907
  35. MIRTAZAPINE [Concomitant]
     Active Substance: MIRTAZAPINE
     Dosage: ONGOING = NOT CHECKED
     Dates: start: 20190315, end: 20190907
  36. PREDNISOLONE SODIUM SUCCINATE [Concomitant]
     Active Substance: PREDNISOLONE SODIUM SUCCINATE
     Indication: Chills
     Dosage: UNK
     Route: 065
     Dates: start: 20170306, end: 20170306
  37. CORTISONE ACETATE [Concomitant]
     Active Substance: CORTISONE ACETATE
     Indication: Respiratory tract infection
     Dosage: ONGOING = NOT CHECKED
     Dates: start: 20190615, end: 20190615
  38. HYDROMORPHONE HYDROCHLORIDE [Concomitant]
     Active Substance: HYDROMORPHONE HYDROCHLORIDE
     Indication: Back pain
     Dosage: UNK
     Route: 065
     Dates: start: 20181227, end: 20190907
  39. HYDROMORPHONE HYDROCHLORIDE [Concomitant]
     Active Substance: HYDROMORPHONE HYDROCHLORIDE
     Dosage: ONGOING = NOT CHECKED
     Dates: start: 20181227, end: 20190907
  40. HYDROMORPHONE HYDROCHLORIDE [Concomitant]
     Active Substance: HYDROMORPHONE HYDROCHLORIDE
     Dosage: UNK
     Route: 065
     Dates: start: 20180628, end: 20190226
  41. HYDROMORPHONE HYDROCHLORIDE [Concomitant]
     Active Substance: HYDROMORPHONE HYDROCHLORIDE
     Dosage: UNK
     Route: 065
     Dates: start: 20180403, end: 20180628
  42. SUCRALFATE [Concomitant]
     Active Substance: SUCRALFATE
     Indication: Product used for unknown indication
     Dosage: UNK ONGOING = CHECKED
     Route: 065
     Dates: end: 20190907
  43. SUCRALFATE [Concomitant]
     Active Substance: SUCRALFATE
     Dosage: UNK
     Dates: end: 20190907
  44. DEXAMETHASONE [Concomitant]
     Active Substance: DEXAMETHASONE
     Indication: Product used for unknown indication
     Dosage: UNK
     Route: 065
     Dates: start: 20170829, end: 20180813
  45. LACTULOSE [Concomitant]
     Active Substance: LACTULOSE
     Indication: Product used for unknown indication
     Dosage: UNK
     Dates: start: 20171212, end: 20190907
  46. RANITIDINE HYDROCHLORIDE [Concomitant]
     Active Substance: RANITIDINE HYDROCHLORIDE
     Indication: Chills
     Dosage: UNK
     Route: 065
     Dates: start: 20170327, end: 20180813
  47. RANITIDINE HYDROCHLORIDE [Concomitant]
     Active Substance: RANITIDINE HYDROCHLORIDE
     Dosage: UNK
     Route: 065
     Dates: start: 20170306, end: 20170306
  48. DIMETHINDENE [Concomitant]
     Active Substance: DIMETHINDENE
     Indication: Chills
     Dosage: UNK
     Route: 065
     Dates: start: 20170306, end: 20170306
  49. DIMETHINDENE [Concomitant]
     Active Substance: DIMETHINDENE
     Dosage: UNK
     Route: 065
     Dates: start: 20170327, end: 20180313
  50. BUPRENORPHINE [Concomitant]
     Active Substance: BUPRENORPHINE
     Indication: Product used for unknown indication
     Dosage: UNK
     Route: 065
  51. LYRICA [Concomitant]
     Active Substance: PREGABALIN
     Indication: Back pain
     Dosage: UNK
     Route: 065
     Dates: start: 20181227, end: 20190226
  52. LYRICA [Concomitant]
     Active Substance: PREGABALIN
     Dosage: ONGOING = CHECKED
  53. DOXYCYCLINE [Concomitant]
     Active Substance: DOXYCYCLINE
     Indication: Respiratory tract infection
     Dosage: UNK
     Route: 065
     Dates: start: 20190502, end: 20190509
  54. TRAZODONE HYDROCHLORIDE [Concomitant]
     Active Substance: TRAZODONE HYDROCHLORIDE
     Indication: Product used for unknown indication
     Dosage: UNK
     Route: 065
  55. TRAZODONE HYDROCHLORIDE [Concomitant]
     Active Substance: TRAZODONE HYDROCHLORIDE
     Dosage: UNK
     Route: 065
  56. TRAZODONE HYDROCHLORIDE [Concomitant]
     Active Substance: TRAZODONE HYDROCHLORIDE
     Dosage: UNK
     Route: 065
  57. ZYRTEC (AUSTRIA) [Concomitant]
     Indication: Pruritus
     Route: 065
     Dates: start: 20170327, end: 20171215
  58. NOVALGIN (AUSTRIA) [Concomitant]
     Indication: Respiratory tract infection
     Dosage: ONGOING = NOT CHECKED
     Route: 065
     Dates: start: 20190315, end: 20191003
  59. NOVALGIN (AUSTRIA) [Concomitant]
     Indication: Hepatic pain
     Dosage: ONGOING = NOT CHECKED
     Dates: start: 20171212, end: 20190907
  60. NOVALGIN (AUSTRIA) [Concomitant]
     Indication: Back pain
     Dosage: ONGOING = NOT CHECKED
     Dates: start: 20190315, end: 20190907
  61. NOVALGIN (AUSTRIA) [Concomitant]
     Dosage: ONGOING = CHECKED
     Route: 065
     Dates: start: 20190315, end: 20190907
  62. NOVALGIN (AUSTRIA) [Concomitant]
     Dosage: UNK
     Route: 065
     Dates: start: 20190509, end: 20190509
  63. NOVALGIN (AUSTRIA) [Concomitant]
     Dosage: ONGOING = CHECKED
     Route: 065
     Dates: start: 20170327, end: 20191003
  64. NOVALGIN (AUSTRIA) [Concomitant]
     Dosage: ONGOING = NOT CHECKED
     Dates: start: 20171212, end: 20190907
  65. NOVALGIN (AUSTRIA) [Concomitant]
     Dosage: UNK
     Route: 065
     Dates: start: 20190615, end: 20190615
  66. NOVALGIN (AUSTRIA) [Concomitant]
     Dosage: ONGOING = NOT CHECKED
     Dates: start: 20170327, end: 20191003
  67. NOVALGIN (AUSTRIA) [Concomitant]
     Dosage: UNK
     Route: 065
     Dates: start: 20171212, end: 20190907
  68. AUGMENTIN [Concomitant]
     Active Substance: AMOXICILLIN\CLAVULANATE POTASSIUM
     Indication: Respiratory tract infection
     Dosage: UNK
     Route: 065
     Dates: start: 20190509, end: 20190516
  69. BAMBUTEROL HYDROCHLORIDE [Concomitant]
     Active Substance: BAMBUTEROL HYDROCHLORIDE
  70. AMOXICILLIN\CLAVULANATE POTASSIUM [Concomitant]
     Active Substance: AMOXICILLIN\CLAVULANATE POTASSIUM
     Indication: Vascular device infection
     Dosage: UNK
     Dates: start: 20180215, end: 20180215
  71. KALIORAL (AUSTRIA) [Concomitant]
     Indication: Product used for unknown indication
     Dosage: UNK
  72. AMOXICILLIN\CLAVULANATE POTASSIUM [Concomitant]
     Active Substance: AMOXICILLIN\CLAVULANATE POTASSIUM
     Indication: Vascular device infection
     Dosage: UNK
     Dates: start: 20180215, end: 20180215
  73. VENLAFAXINE HYDROCHLORIDE [Concomitant]
     Active Substance: VENLAFAXINE HYDROCHLORIDE
     Indication: Product used for unknown indication
     Route: 065
     Dates: start: 20190315, end: 20190907
  74. VENLAFAXINE HYDROCHLORIDE [Concomitant]
     Active Substance: VENLAFAXINE HYDROCHLORIDE
     Dosage: ONGOING = NOT CHECKED
     Dates: start: 20190315, end: 20190907
  75. PANTOPRAZOLE SODIUM [Concomitant]
     Active Substance: PANTOPRAZOLE SODIUM
     Indication: Product used for unknown indication
     Dosage: ONGOING = CHECKED
     Route: 065
     Dates: start: 20170302
  76. PANTOPRAZOLE SODIUM [Concomitant]
     Active Substance: PANTOPRAZOLE SODIUM
     Dosage: UNK
     Route: 065
     Dates: start: 20170302
  77. BISOPROLOL FUMARATE [Concomitant]
     Active Substance: BISOPROLOL FUMARATE
     Indication: Product used for unknown indication
     Dosage: ONGOING = CHECKED
     Route: 065
     Dates: end: 20190907
  78. EDOXABAN TOSYLATE [Concomitant]
     Active Substance: EDOXABAN TOSYLATE
     Indication: Pulmonary embolism
     Dosage: ONGOING = NOT CHECKED
     Route: 065
     Dates: start: 20190315, end: 20190907
  79. EDOXABAN TOSYLATE [Concomitant]
     Active Substance: EDOXABAN TOSYLATE
     Dosage: UNK
     Route: 065
     Dates: start: 20190315, end: 20190907
  80. DAFLON [Concomitant]
     Indication: Product used for unknown indication
     Dosage: UNK
     Route: 065
  81. DAFLON [Concomitant]
     Dosage: ONGOING = CHECKED
     Route: 065
  82. DAFLON [Concomitant]
     Dosage: ONGOING = CHECKED
     Route: 065
  83. DAFLON [Concomitant]
     Dosage: UNK
     Dates: end: 20190907
  84. DAFLON [Concomitant]
     Dosage: ONGOING = NOT CHECKED
     Route: 065
     Dates: start: 20171212, end: 20190907
  85. DAFLON [Concomitant]
     Dosage: UNK
     Dates: start: 20171212, end: 20190907
  86. PASPERTIN [Concomitant]
     Indication: Product used for unknown indication
     Dosage: ONGOING = NOT CHECKED
     Route: 065
     Dates: start: 20171212, end: 20190907
  87. PASPERTIN [Concomitant]
     Dosage: UNK
     Dates: start: 20171212, end: 20190907
  88. PARACODIN [Concomitant]
     Indication: Cough
     Dosage: UNK
     Dates: start: 20190510
  89. PARACODIN [Concomitant]
     Dosage: UNK
     Dates: start: 20171212, end: 20180115
  90. ACETAMINOPHEN [Concomitant]
     Active Substance: ACETAMINOPHEN
     Dosage: UNK
     Route: 065
     Dates: start: 20170327, end: 20170327
  91. TEMESTA [Concomitant]
     Indication: Product used for unknown indication
     Dosage: UNK
     Dates: start: 20190226
  92. TEMESTA [Concomitant]
     Dosage: ONGOING = CHECKED
     Dates: start: 20190226
  93. KYTRIL [Concomitant]
     Active Substance: GRANISETRON HYDROCHLORIDE
     Indication: Product used for unknown indication
     Dosage: UNK
     Route: 065
     Dates: start: 20171212, end: 20180813
  94. LOVENOX [Concomitant]
     Active Substance: ENOXAPARIN SODIUM
     Indication: Product used for unknown indication
     Dosage: UNK
     Route: 065
     Dates: start: 20180126, end: 20180208
  95. LOVENOX [Concomitant]
     Active Substance: ENOXAPARIN SODIUM
     Dosage: UNK
     Route: 065
     Dates: start: 20190312, end: 20190315
  96. DEXAMETHASONE [Concomitant]
     Active Substance: DEXAMETHASONE
     Dosage: UNK
     Route: 065
     Dates: start: 20170829, end: 20180813
  97. DEXAMETHASONE [Concomitant]
     Active Substance: DEXAMETHASONE
     Dosage: UNK
     Route: 065
     Dates: start: 20180127, end: 20180313
  98. DEXAMETHASONE [Concomitant]
     Active Substance: DEXAMETHASONE
     Dosage: ONGOING = NOT CHECKED
     Dates: start: 20190215, end: 20190907
  99. DEXAMETHASONE [Concomitant]
     Active Substance: DEXAMETHASONE
     Dosage: ONGOING = CHECKED
     Dates: start: 20190215, end: 20190907

REACTIONS (3)
  - Dyspnoea [Not Recovered/Not Resolved]
  - Respiratory tract infection [Recovered/Resolved]
  - Cough [Not Recovered/Not Resolved]

NARRATIVE: CASE EVENT DATE: 20190415
